FAERS Safety Report 12717520 (Version 1)
Quarter: 2016Q3

REPORT INFORMATION
  Report Type: Spontaneous
  Country: US (occurrence: US)
  Receive Date: 20160906
  Receipt Date: 20160906
  Transmission Date: 20161109
  Serious: No
  Sender: FDA-Public Use
  Company Number: US-AMNEAL PHARMACEUTICALS-2016AMN00257

PATIENT
  Age: 67 Year
  Sex: Male
  Weight: 97.52 kg

DRUGS (6)
  1. ^HEART MEDICATION^ [Concomitant]
  2. ALLOPURINOL. [Concomitant]
     Active Substance: ALLOPURINOL
     Indication: GOUT
     Dosage: 400 MG, 1X/DAY
     Dates: start: 2014
  3. INHALER [Concomitant]
     Active Substance: UNSPECIFIED INGREDIENT
  4. GABAPENTIN. [Suspect]
     Active Substance: GABAPENTIN
     Indication: NEUROPATHY PERIPHERAL
     Dosage: 300 MG, 3X/DAY
     Route: 048
     Dates: start: 2015
  5. ZOMETA [Concomitant]
     Active Substance: ZOLEDRONIC ACID
     Indication: DRUG THERAPY
     Dosage: UNK
     Route: 042
  6. ACYCLOVIR. [Concomitant]
     Active Substance: ACYCLOVIR
     Dosage: UNK
     Route: 048
     Dates: start: 2014

REACTIONS (4)
  - Hypersomnia [Recovered/Resolved]
  - Hyperaesthesia [Recovered/Resolved]
  - Fatigue [Recovered/Resolved]
  - Hypoaesthesia [Recovered/Resolved]

NARRATIVE: CASE EVENT DATE: 201604
